FAERS Safety Report 8921862 (Version 1)
Quarter: 2012Q4

REPORT INFORMATION
  Report Type: 
  Country: JP (occurrence: JP)
  Receive Date: 20121121
  Receipt Date: 20121121
  Transmission Date: 20130627
  Serious: Yes (Hospitalization)
  Sender: FDA-Public Use
  Company Number: JP-JUTA-2012-20051

PATIENT
  Age: 9 Year
  Sex: Male
  Weight: 27 kg

DRUGS (8)
  1. LEVETIRACETAM (UNKNOWN) [Suspect]
     Indication: EPILEPSY
     Dosage: 750 mg, UNK
     Route: 065
  2. LEVETIRACETAM (UNKNOWN) [Suspect]
     Dosage: 500 mg, x 2 wks
     Route: 065
  3. LEVETIRACETAM (UNKNOWN) [Suspect]
     Dosage: 250 mg, x 4 wks
     Route: 065
  4. LEVETIRACETAM (UNKNOWN) [Suspect]
     Dosage: 125 mg, x 2 wks
     Route: 065
  5. VALPROATE SODIUM [Concomitant]
     Indication: EPILEPSY
     Dosage: 700 mg, UNK
     Route: 065
  6. ZONISAMIDE [Concomitant]
     Indication: EPILEPSY
     Dosage: 200 mg, UNK
     Route: 065
  7. CLOBAZAM [Concomitant]
     Indication: EPILEPSY
     Dosage: 6 mg, unknown
     Route: 065
  8. LAMOTRIGINE [Concomitant]
     Indication: EPILEPSY
     Dosage: 10 mg, unknown
     Route: 065

REACTIONS (1)
  - Status epilepticus [Recovered/Resolved]
